FAERS Safety Report 7539653-8 (Version None)
Quarter: 2011Q2

REPORT INFORMATION
  Report Type: 
  Country: None (occurrence: None)
  Receive Date: 20110609
  Receipt Date: 20110609
  Transmission Date: 20111010
  Serious: No
  Sender: FDA-Public Use
  Company Number: None

PATIENT
  Age: 47 Year
  Sex: Male
  Weight: 92.9874 kg

DRUGS (3)
  1. LEVAQUIN [Suspect]
     Indication: ACUTE SINUSITIS
     Dosage: ONE TABLET PER DAY BUCCAL 7 OUT OF 10 DAYS
     Route: 002
     Dates: start: 20110421, end: 20110427
  2. LEVAQUIN [Suspect]
     Indication: RHINITIS ALLERGIC
     Dosage: ONE TABLET PER DAY BUCCAL 7 OUT OF 10 DAYS
     Route: 002
     Dates: start: 20110421, end: 20110427
  3. LEVAQUIN [Suspect]
     Indication: CHRONIC SINUSITIS
     Dosage: ONE TABLET PER DAY BUCCAL 7 OUT OF 10 DAYS
     Route: 002
     Dates: start: 20110421, end: 20110427

REACTIONS (14)
  - MUSCULOSKELETAL PAIN [None]
  - OEDEMA PERIPHERAL [None]
  - CONFUSIONAL STATE [None]
  - JOINT CREPITATION [None]
  - CONSTIPATION [None]
  - NIGHTMARE [None]
  - FEELING ABNORMAL [None]
  - NEUROPATHY PERIPHERAL [None]
  - PAIN IN EXTREMITY [None]
  - TINNITUS [None]
  - ARTHRALGIA [None]
  - MUSCLE SPASMS [None]
  - DEPRESSION [None]
  - TENDONITIS [None]
